FAERS Safety Report 13180035 (Version 3)
Quarter: 2017Q2

REPORT INFORMATION
  Report Type: Spontaneous
  Country: US (occurrence: US)
  Receive Date: 20170202
  Receipt Date: 20170421
  Transmission Date: 20170830
  Serious: Yes (Other)
  Sender: FDA-Public Use
  Company Number: US-SHIRE-US201700720

PATIENT
  Age: 15 Year
  Sex: Female

DRUGS (6)
  1. CROMOLYN                           /00082101/ [Concomitant]
     Indication: PREMEDICATION
     Dosage: UNK, UNKNOWN
     Route: 065
  2. BENADRYL [Concomitant]
     Active Substance: DIPHENHYDRAMINE HYDROCHLORIDE
     Indication: PREMEDICATION
     Dosage: 30 MG, 1X/DAY:QD
     Route: 048
  3. GASTROCROM [Concomitant]
     Active Substance: CROMOLYN SODIUM
     Indication: PREMEDICATION
     Dosage: 200 MG, 4X/DAY:QID
     Route: 048
  4. GASTROCROM [Concomitant]
     Active Substance: CROMOLYN SODIUM
     Dosage: 300 MG, 4X/DAY:QID
     Route: 048
  5. VPRIV [Suspect]
     Active Substance: VELAGLUCERASE ALFA
     Indication: GAUCHER^S DISEASE
     Dosage: UNK, UNKNOWN
     Route: 041
     Dates: start: 20160825
  6. VPRIV [Suspect]
     Active Substance: VELAGLUCERASE ALFA
     Dosage: 1600 IU, 1X/2WKS
     Route: 041
     Dates: start: 20170109

REACTIONS (9)
  - Muscle spasms [Unknown]
  - Abdominal pain lower [Unknown]
  - Throat irritation [Unknown]
  - Generalised erythema [Unknown]
  - Bladder pain [Unknown]
  - Flushing [Unknown]
  - Dyspnoea [Unknown]
  - Infusion related reaction [Unknown]
  - Abdominal pain [Unknown]

NARRATIVE: CASE EVENT DATE: 20170117
